FAERS Safety Report 6879378-5 (Version None)
Quarter: 2010Q3

REPORT INFORMATION
  Report Type: 
  Country: None (occurrence: None)
  Receive Date: 20100728
  Receipt Date: 20100713
  Transmission Date: 20110219
  Serious: Yes (Hospitalization)
  Sender: FDA-Public Use
  Company Number: FR-ELI_LILLY_AND_COMPANY-FR201007003173

PATIENT
  Sex: Female

DRUGS (5)
  1. SOMATROPIN [Suspect]
     Dosage: 0.5 MG, DAILY (1/D)
     Dates: start: 20040419
  2. HYDROCORTISONE [Concomitant]
  3. LEVOTHYROXINE SODIUM [Concomitant]
  4. ESCITALOPRAM OXALATE [Concomitant]
     Indication: DEPRESSION
     Dates: start: 20060301
  5. XANAX [Concomitant]
     Indication: ANXIETY

REACTIONS (2)
  - PYREXIA [None]
  - URTICARIA [None]
